FAERS Safety Report 8501926-X (Version None)
Quarter: 2012Q3

REPORT INFORMATION
  Report Type: 
  Country: None (occurrence: None)
  Receive Date: 20120711
  Receipt Date: 20120709
  Transmission Date: 20120928
  Serious: Yes (Death)
  Sender: FDA-Public Use
  Company Number: PHHY2012NL058993

PATIENT
  Sex: Male

DRUGS (3)
  1. ZOMETA [Suspect]
     Dosage: 4 MG/ 100 ML 1X PER 21 DAYS
     Dates: start: 20120619
  2. ZOMETA [Suspect]
     Indication: PROSTATE CANCER METASTATIC
     Dosage: 4 MG/ 100 ML 1X PER 21 DAYS
  3. ZOMETA [Suspect]
     Dosage: 4 MG/ 100 ML 1X PER 21 DAYS
     Dates: start: 20111027

REACTIONS (1)
  - DEATH [None]
